FAERS Safety Report 4730393-7 (Version None)
Quarter: 2005Q3

REPORT INFORMATION
  Report Type: 
  Country: None (occurrence: None)
  Receive Date: 20050801
  Receipt Date: 20050412
  Transmission Date: 20060218
  Serious: Yes (Hospitalization, Disabling)
  Sender: FDA-Public Use
  Company Number: US-MERCK-0504USA02082

PATIENT
  Age: 46 Year
  Sex: Female
  Weight: 72 kg

DRUGS (11)
  1. VIOXX [Suspect]
     Indication: RHEUMATOID ARTHRITIS
     Route: 048
     Dates: start: 20010101, end: 20041001
  2. VIOXX [Suspect]
     Route: 048
     Dates: start: 20010101, end: 20041001
  3. VIOXX [Suspect]
     Route: 048
     Dates: start: 20010101, end: 20041001
  4. VIOXX [Suspect]
     Indication: OSTEOARTHRITIS
     Route: 048
     Dates: start: 20010101, end: 20041001
  5. VIOXX [Suspect]
     Route: 048
     Dates: start: 20010101, end: 20041001
  6. VIOXX [Suspect]
     Route: 048
     Dates: start: 20010101, end: 20041001
  7. TYLENOL (CAPLET) [Concomitant]
     Indication: PAIN
     Route: 065
  8. ALEVE [Concomitant]
     Indication: PAIN
     Route: 065
  9. NEXIUM [Concomitant]
     Indication: GASTRIC DISORDER
     Route: 065
  10. DARVOCET-N 100 [Concomitant]
     Indication: RHEUMATOID ARTHRITIS
     Route: 065
  11. DARVOCET-N 100 [Concomitant]
     Indication: OSTEOARTHRITIS
     Route: 065

REACTIONS (9)
  - AMNESIA [None]
  - FIBROMYALGIA [None]
  - MYOCARDIAL INFARCTION [None]
  - OSTEOARTHRITIS [None]
  - PAIN [None]
  - RHEUMATOID ARTHRITIS [None]
  - SWELLING [None]
  - UTERINE DISORDER [None]
  - WOLFF-PARKINSON-WHITE SYNDROME [None]
